FAERS Safety Report 5801516-3 (Version None)
Quarter: 2008Q2

REPORT INFORMATION
  Report Type: 
  Country: None (occurrence: None)
  Receive Date: 20080626
  Receipt Date: 20071026
  Transmission Date: 20081010
  Serious: Yes (Hospitalization)
  Sender: FDA-Public Use
  Company Number: 529500

PATIENT

DRUGS (3)
  1. CAPECITABINE (CAPECITABINE) [Suspect]
     Indication: PANCREATIC CARCINOMA METASTATIC
     Dosage: 750 MG/M2 2 PER 1 DAY ORAL
     Route: 048
  2. GEMCITABINE [Suspect]
     Indication: PANCREATIC CARCINOMA METASTATIC
     Dosage: 750 MG/M2
  3. DOCETAXEL [Suspect]
     Indication: PANCREATIC CARCINOMA METASTATIC
     Dosage: 30 MG/M2 INTRAVENOUS
     Route: 042

REACTIONS (2)
  - FEBRILE NEUTROPENIA [None]
  - SEPSIS [None]
